FAERS Safety Report 21651206 (Version 3)
Quarter: 2023Q2

REPORT INFORMATION
  Report Type: Spontaneous
  Country: US (occurrence: US)
  Receive Date: 20221128
  Receipt Date: 20230407
  Transmission Date: 20230721
  Serious: No
  Sender: FDA-Public Use
  Company Number: US-PFIZER INC-PV202200111482

PATIENT
  Age: 62 Year
  Sex: Male
  Weight: 68.027 kg

DRUGS (2)
  1. CAVERJECT [Suspect]
     Active Substance: ALPROSTADIL
     Indication: Erectile dysfunction
     Dosage: UNK
  2. LAMOTRIGINE [Concomitant]
     Active Substance: LAMOTRIGINE
     Dosage: UNK

REACTIONS (1)
  - Hypoacusis [Unknown]
